FAERS Safety Report 5578809-0 (Version None)
Quarter: 2007Q4

REPORT INFORMATION
  Report Type: 
  Country: None (occurrence: None)
  Receive Date: 20071228
  Receipt Date: 20071228
  Transmission Date: 20080405
  Serious: Yes (Hospitalization)
  Sender: FDA-Public Use
  Company Number: None

PATIENT
  Age: 71 Year
  Sex: Male

DRUGS (1)
  1. METHADONE HCL [Suspect]
     Indication: PAIN
     Dosage: 20MG  PRN  PO
     Route: 048
     Dates: start: 20071104, end: 20071104

REACTIONS (2)
  - HYPOTENSION [None]
  - RESPIRATORY DEPRESSION [None]
